FAERS Safety Report 12618298 (Version 10)
Quarter: 2021Q4

REPORT INFORMATION
  Report Type: Report from Study
  Country: CO (occurrence: CO)
  Receive Date: 20160803
  Receipt Date: 20211019
  Transmission Date: 20220303
  Serious: Yes (Hospitalization)
  Sender: FDA-Public Use
  Company Number: PHHY2015CO136842

PATIENT
  Age: 40 Year
  Sex: Male
  Weight: 75 kg

DRUGS (2)
  1. TASIGNA [Suspect]
     Active Substance: NILOTINIB
     Indication: Chronic myeloid leukaemia
     Dosage: 300 MG, Q12H
     Route: 048
     Dates: start: 20150406
  2. TASIGNA [Suspect]
     Active Substance: NILOTINIB
     Dosage: 600 MG
     Route: 048

REACTIONS (23)
  - Nephrolithiasis [Unknown]
  - Abdominal pain [Recovered/Resolved]
  - Pain [Unknown]
  - Back pain [Unknown]
  - Abdominal pain [Unknown]
  - Blast crisis in myelogenous leukaemia [Unknown]
  - Gastritis [Unknown]
  - Pain in extremity [Unknown]
  - Drug intolerance [Unknown]
  - Chikungunya virus infection [Unknown]
  - Pyrexia [Unknown]
  - Rash [Unknown]
  - Cough [Unknown]
  - Discouragement [Unknown]
  - Platelet count decreased [Unknown]
  - Bone pain [Unknown]
  - Chest pain [Unknown]
  - Headache [Unknown]
  - Nausea [Unknown]
  - Arthralgia [Unknown]
  - Fatigue [Recovered/Resolved]
  - Asthenia [Unknown]
  - Hypoaesthesia [Unknown]

NARRATIVE: CASE EVENT DATE: 20151016
